FAERS Safety Report 12567991 (Version 1)
Quarter: 2016Q3

REPORT INFORMATION
  Report Type: Spontaneous
  Country: US (occurrence: US)
  Receive Date: 20160718
  Receipt Date: 20160718
  Transmission Date: 20161109
  Serious: No
  Sender: FDA-Public Use
  Company Number: US-ASTELLAS-2016US013665

PATIENT
  Sex: Female
  Weight: 60 kg

DRUGS (1)
  1. MYRBETRIQ [Suspect]
     Active Substance: MIRABEGRON
     Indication: POLLAKIURIA
     Dosage: 25 MG, TWICE DAILY BY MOUTH
     Route: 048

REACTIONS (1)
  - Inappropriate schedule of drug administration [Unknown]
